FAERS Safety Report 5754787-6 (Version None)
Quarter: 2008Q2

REPORT INFORMATION
  Report Type: 
  Country: None (occurrence: None)
  Receive Date: 20080530
  Receipt Date: 20080519
  Transmission Date: 20081010
  Serious: Yes (Other)
  Sender: FDA-Public Use
  Company Number: BR-GENENTECH-261757

PATIENT
  Sex: Female
  Weight: 32 kg

DRUGS (1)
  1. MABTHERA [Suspect]
     Indication: IDIOPATHIC THROMBOCYTOPENIC PURPURA
     Dosage: 431 MG, Q2W
     Route: 050
     Dates: start: 20080410

REACTIONS (1)
  - PLATELET COUNT DECREASED [None]
